FAERS Safety Report 7893838-X (Version None)
Quarter: 2011Q4

REPORT INFORMATION
  Report Type: 
  Country: None (occurrence: None)
  Receive Date: 20111104
  Receipt Date: 20111025
  Transmission Date: 20120403
  Serious: Yes (Life-Threatening)
  Sender: FDA-Public Use
  Company Number: JP-SANOFI-AVENTIS-200912223JP

PATIENT
  Age: 53 Year
  Sex: Female
  Weight: 67.4 kg

DRUGS (3)
  1. HUMALOG [Suspect]
     Indication: TYPE 1 DIABETES MELLITUS
     Dosage: DOSE AS USED: 11-6-8 UNITS
     Route: 058
     Dates: start: 20090201
  2. LANTUS [Suspect]
     Indication: TYPE 1 DIABETES MELLITUS
     Route: 058
     Dates: start: 20090201
  3. SOLOSTAR [Suspect]
     Indication: DEVICE THERAPY

REACTIONS (3)
  - DIABETIC KETOACIDOSIS [None]
  - ANTI-INSULIN ANTIBODY POSITIVE [None]
  - DRUG INEFFECTIVE [None]
